FAERS Safety Report 8032418-2 (Version None)
Quarter: 2012Q1

REPORT INFORMATION
  Report Type: 
  Country: None (occurrence: None)
  Receive Date: 20120105
  Receipt Date: 20111221
  Transmission Date: 20120608
  Serious: Yes (Life-Threatening)
  Sender: FDA-Public Use
  Company Number: 1000026574

PATIENT
  Age: 53 Year
  Sex: Male

DRUGS (7)
  1. TRAMADOL HCL [Suspect]
     Dosage: (4500 MG, ONCE), ORAL
     Route: 048
     Dates: start: 20061230, end: 20061230
  2. PROPOFAN (DEXTROPROPOXYPHENE, ACETAMINOPHEN, CAFFEINE) [Suspect]
     Dosage: (30 DOSAGE FORMS, ONCE)
     Dates: start: 20061230, end: 20061230
  3. SIMVASTATIN [Suspect]
     Dosage: (560 MG, ONCE) ,ORAL
     Route: 048
     Dates: start: 20061230, end: 20061230
  4. ACETAMINOPHEN [Suspect]
     Dosage: (8000 MG, ONCE), ORAL
     Route: 048
     Dates: start: 20061230, end: 20061230
  5. AMITRIPTYLINE HYDROCHLORIDE [Suspect]
     Dates: start: 20061230, end: 20061230
  6. CITALOPRAM HYDROBROMIDE [Suspect]
     Dosage: (1120 MG, ONCE), ORAL
     Route: 048
     Dates: start: 20061230, end: 20061230
  7. TRIMEPRAZINE TARTRATE [Suspect]
     Dosage: ORAL
     Route: 048
     Dates: start: 20061230, end: 20061230

REACTIONS (13)
  - HAEMODYNAMIC INSTABILITY [None]
  - LUNG DISORDER [None]
  - COAGULATION FACTOR V LEVEL DECREASED [None]
  - LIVER TRANSPLANT [None]
  - MULTIPLE DRUG OVERDOSE [None]
  - PROTHROMBIN TIME PROLONGED [None]
  - MULTI-ORGAN FAILURE [None]
  - DIALYSIS [None]
  - ASPIRATION [None]
  - COMA [None]
  - HYPERKALAEMIA [None]
  - HEPATITIS FULMINANT [None]
  - HYPOXIA [None]
